FAERS Safety Report 6189643-5 (Version None)
Quarter: 2009Q2

REPORT INFORMATION
  Report Type: 
  Country: None (occurrence: None)
  Receive Date: 20090514
  Receipt Date: 20090410
  Transmission Date: 20091009
  Serious: No
  Sender: FDA-Public Use
  Company Number: US-BAYER-200917017NA

PATIENT
  Age: 48 Year
  Sex: Male

DRUGS (1)
  1. LEVITRA [Suspect]
     Indication: DRUG USE FOR UNKNOWN INDICATION
     Dosage: UNIT DOSE: 20 MG
     Route: 048

REACTIONS (1)
  - ADVERSE EVENT [None]
